FAERS Safety Report 4692512-0 (Version None)
Quarter: 2005Q2

REPORT INFORMATION
  Report Type: 
  Country: None (occurrence: None)
  Receive Date: 20050613
  Receipt Date: 20050318
  Transmission Date: 20051028
  Serious: No
  Sender: FDA-Public Use
  Company Number: 2005-00551

PATIENT
  Age: 59 Year
  Sex: Female
  Weight: 99.8 kg

DRUGS (3)
  1. VELCADE [Suspect]
     Indication: MULTIPLE MYELOMA
     Dosage: IV BOLUS
     Route: 040
     Dates: start: 20041101, end: 20050228
  2. ANTIEMETICS AND ANTINAUSEANTS [Concomitant]
  3. ANTIHYPERTENSIVES [Concomitant]

REACTIONS (5)
  - ASTHENIA [None]
  - DIZZINESS [None]
  - HYPOTENSION [None]
  - NAUSEA [None]
  - NEUROPATHY PERIPHERAL [None]
